FAERS Safety Report 14767619 (Version 3)
Quarter: 2018Q2

REPORT INFORMATION
  Report Type: Spontaneous
  Country: US (occurrence: US)
  Receive Date: 20180417
  Receipt Date: 20180605
  Transmission Date: 20180711
  Serious: No
  Sender: FDA-Public Use
  Company Number: US-PFIZER INC-2018154429

PATIENT
  Sex: Male

DRUGS (1)
  1. METHYLPHENIDATE HYDROCHLORIDE. [Suspect]
     Active Substance: METHYLPHENIDATE HYDROCHLORIDE
     Dosage: 20 MG, UNK

REACTIONS (5)
  - Somnolence [Unknown]
  - Product physical issue [Unknown]
  - Lethargy [Unknown]
  - Drug ineffective [Unknown]
  - Incorrect dose administered [Unknown]
